FAERS Safety Report 5415208-6 (Version None)
Quarter: 2007Q3

REPORT INFORMATION
  Report Type: 
  Country: None (occurrence: None)
  Receive Date: 20070815
  Receipt Date: 20070813
  Transmission Date: 20080115
  Serious: Yes (Death)
  Sender: FDA-Public Use
  Company Number: PHEH2007US02770

PATIENT
  Age: 81 Year
  Sex: Female

DRUGS (12)
  1. CLOZARIL [Suspect]
     Indication: PARKINSON'S DISEASE
     Dosage: 6.25 MG, QD
     Route: 048
     Dates: start: 20050725, end: 20061205
  2. ZEGERID [Concomitant]
     Dosage: 40 MG, QD
  3. SYNTHROID [Concomitant]
     Dosage: 50 MCG QD
  4. SINEMET [Concomitant]
     Dosage: 25/100 MG TID
  5. MIRAPEX [Concomitant]
     Dosage: 0.5 MG, TID
  6. MEVACOR [Concomitant]
     Dosage: 20 MG, QD
  7. IMDUR [Concomitant]
     Dosage: 30 MG, QD
  8. HYZAAR [Concomitant]
     Dosage: 12.5 MG /50 MG QD
  9. EFFEXOR [Concomitant]
     Dosage: 75 MG, QD
  10. MACROBID [Concomitant]
     Dosage: 1 MG, BID FOR 10 DAYS
  11. PREMARIN [Concomitant]
     Dosage: VAGINAL CREAM
  12. MULTI-VITAMIN [Concomitant]

REACTIONS (2)
  - CARDIO-RESPIRATORY ARREST [None]
  - MYOCARDIAL INFARCTION [None]
